FAERS Safety Report 9788118 (Version 1)
Quarter: 2013Q4

REPORT INFORMATION
  Report Type: Spontaneous
  Country: US (occurrence: None)
  Receive Date: 20131227
  Receipt Date: 20131227
  Transmission Date: 20140711
  Serious: Yes (Hospitalization)
  Sender: FDA-Public Use
  Company Number: None

PATIENT
  Age: 87 Year
  Sex: Female
  Weight: 54.09 kg

DRUGS (16)
  1. COUMADIN [Suspect]
     Indication: ATRIAL FIBRILLATION
     Dosage: 2.5MG/ 5MG?TTHFSS/MW?
     Route: 048
  2. PLAVIX [Suspect]
     Indication: DEEP VEIN THROMBOSIS
     Route: 048
  3. PLAVIX [Suspect]
     Indication: STENT PLACEMENT
     Route: 048
  4. BUDESONIDE [Concomitant]
  5. SORBITOL [Concomitant]
  6. SPIRIVA [Concomitant]
  7. LUTEIN [Concomitant]
  8. ATROVENT [Concomitant]
  9. FORMOTEROL [Concomitant]
  10. ISMO [Concomitant]
  11. PROPRANOLOL [Concomitant]
  12. NTG [Concomitant]
  13. VITAMIN B12 [Concomitant]
  14. ZOCOR [Concomitant]
  15. PEPCID [Concomitant]
  16. FOLATE [Concomitant]

REACTIONS (6)
  - Fall [None]
  - Sternal fracture [None]
  - Haematoma [None]
  - Haemorrhagic anaemia [None]
  - International normalised ratio increased [None]
  - Arrhythmia [None]
